FAERS Safety Report 6013630-0 (Version None)
Quarter: 2008Q4

REPORT INFORMATION
  Report Type: 
  Country: None (occurrence: None)
  Receive Date: 20081218
  Receipt Date: 20081218
  Transmission Date: 20090506
  Serious: Yes (Hospitalization)
  Sender: FDA-Public Use
  Company Number: None

PATIENT
  Age: 56 Year
  Sex: Male
  Weight: 57.3 kg

DRUGS (1)
  1. IRON DEXTRAN [Suspect]
     Dosage: 100 MG OTHER IV
     Route: 042
     Dates: start: 20080419, end: 20081110

REACTIONS (1)
  - ANGIOEDEMA [None]
